FAERS Safety Report 9681722 (Version 2)
Quarter: 2014Q1

REPORT INFORMATION
  Report Type: Spontaneous
  Country: US (occurrence: US)
  Receive Date: 20131111
  Receipt Date: 20140210
  Transmission Date: 20141002
  Serious: Yes (Death)
  Sender: FDA-Public Use
  Company Number: US-GLAXOSMITHKLINE-A1049061A

PATIENT
  Age: 71 Year
  Sex: Female
  Weight: 90.9 kg

DRUGS (3)
  1. VOTRIENT [Suspect]
     Indication: UTERINE CANCER
     Dosage: 800MG PER DAY
     Route: 048
     Dates: start: 20130904, end: 20131029
  2. LABETALOL [Concomitant]
  3. DIOVAN [Concomitant]

REACTIONS (2)
  - Sarcoma [Fatal]
  - Disease progression [Fatal]
